APPROVED DRUG PRODUCT: LOPERAMIDE HYDROCHLORIDE
Active Ingredient: LOPERAMIDE HYDROCHLORIDE
Strength: 1MG/5ML
Dosage Form/Route: SOLUTION;ORAL
Application: A073187 | Product #001
Applicant: ALPHARMA US PHARMACEUTICALS DIVISION
Approved: Sep 15, 1992 | RLD: No | RS: No | Type: DISCN